FAERS Safety Report 4824690-4 (Version None)
Quarter: 2005Q4

REPORT INFORMATION
  Report Type: 
  Country: None (occurrence: None)
  Receive Date: 20051012
  Receipt Date: 20050825
  Transmission Date: 20060501
  Serious: No
  Sender: FDA-Public Use
  Company Number: 2005S1000191

PATIENT
  Age: 61 Year
  Weight: 101 kg

DRUGS (11)
  1. CUBICIN [Suspect]
     Indication: PERITONITIS
     Dosage: 4 MG/ KG; Q24H; IV
     Route: 042
     Dates: start: 20050802
  2. SIMVASTATIN [Concomitant]
  3. PANTOPRAZOLE [Concomitant]
  4. CLOPIDOGREL BISULFATE [Concomitant]
  5. INSULIN [Concomitant]
  6. METOCLOPRAMIDE [Concomitant]
  7. POTASSIUM CHLORIDE [Concomitant]
  8. ACETYLSALICYLIC ACID [Concomitant]
  9. CARVEDILOL [Concomitant]
  10. AMIOCLARONE [Concomitant]
  11. FOLIC ACID [Concomitant]

REACTIONS (1)
  - BLOOD CREATINE PHOSPHOKINASE INCREASED [None]
